FAERS Safety Report 8743249 (Version 2)
Quarter: 2012Q4

REPORT INFORMATION
  Report Type: 
  Country: DE (occurrence: DE)
  Receive Date: 20120824
  Receipt Date: 20120918
  Transmission Date: 20130627
  Serious: Yes (Other)
  Sender: FDA-Public Use
  Company Number: DE-GLAXOSMITHKLINE-D0076802A

PATIENT
  Age: 40 None
  Sex: Female
  Weight: 95 kg

DRUGS (2)
  1. REVOLADE [Suspect]
     Indication: IDIOPATHIC THROMBOCYTOPENIC PURPURA
     Dosage: 50MG Per day
     Route: 048
     Dates: start: 20120702, end: 20120813
  2. IMMUNOGLOBULINS [Suspect]
     Route: 065

REACTIONS (3)
  - Thrombocytopenia [Unknown]
  - Petechiae [Unknown]
  - Contraindication to medical treatment [Unknown]
